FAERS Safety Report 4850474-7 (Version None)
Quarter: 2005Q4

REPORT INFORMATION
  Report Type: 
  Country: None (occurrence: None)
  Receive Date: 20051123
  Receipt Date: 20050805
  Transmission Date: 20060501
  Serious: No
  Sender: FDA-Public Use
  Company Number: 216364

PATIENT
  Age: 56 Year
  Sex: Male
  Weight: 90.7 kg

DRUGS (5)
  1. RAPTIVA [Suspect]
     Indication: PSORIASIS
     Dosage: 1 ML, 1/WEEK, SUBCUTANEOUS
     Route: 058
     Dates: start: 20050613
  2. GLUCOPHAGE [Concomitant]
  3. ALLOPURINOL [Concomitant]
  4. ADVANTAN (METHYLPREDNISONE ACEPONATE) [Concomitant]
  5. ZETIA [Concomitant]

REACTIONS (1)
  - HYPOAESTHESIA [None]
